FAERS Safety Report 4690030-7 (Version None)
Quarter: 2005Q2

REPORT INFORMATION
  Report Type: 
  Country: None (occurrence: None)
  Receive Date: 20050614
  Receipt Date: 20050531
  Transmission Date: 20051028
  Serious: Yes (Congenital Anomaly, Other)
  Sender: FDA-Public Use
  Company Number: 2005079718

PATIENT
  Sex: Female

DRUGS (2)
  1. DEPO-PROVERA [Suspect]
     Indication: CONTRACEPTION
     Dates: start: 20020515, end: 20020515
  2. ISOTRETINOIN [Suspect]
     Indication: ACNE VARIOLIFORMIS
     Dosage: 20 MG (DAILY), ORAL
     Route: 048
     Dates: start: 20020515, end: 20020501

REACTIONS (7)
  - ANOMALY OF EXTERNAL EAR CONGENITAL [None]
  - APGAR SCORE LOW [None]
  - CONGENITAL ANOMALY [None]
  - DEVELOPMENTAL DELAY [None]
  - DRUG EXPOSURE DURING PREGNANCY [None]
  - MOVEMENT DISORDER [None]
  - POOR SUCKING REFLEX [None]
